FAERS Safety Report 12563688 (Version 3)
Quarter: 2017Q2

REPORT INFORMATION
  Report Type: Report from Study
  Country: US (occurrence: US)
  Receive Date: 20160716
  Receipt Date: 20170407
  Transmission Date: 20170830
  Serious: Yes (Death)
  Sender: FDA-Public Use
  Company Number: US-BIOGEN-2016BI00263885

PATIENT
  Age: 43 Year
  Sex: Male

DRUGS (1)
  1. TYSABRI [Suspect]
     Active Substance: NATALIZUMAB
     Indication: MULTIPLE SCLEROSIS
     Route: 042
     Dates: start: 20131108, end: 20151023

REACTIONS (2)
  - Death [Fatal]
  - Multiple sclerosis [Fatal]

NARRATIVE: CASE EVENT DATE: 20160622
